FAERS Safety Report 13177528 (Version 1)
Quarter: 2017Q1

REPORT INFORMATION
  Report Type: Report from Study
  Country: US (occurrence: US)
  Receive Date: 20170201
  Receipt Date: 20170201
  Transmission Date: 20170428
  Serious: No
  Sender: FDA-Public Use
  Company Number: US-EXELIXIS-CABO-16006437

PATIENT
  Sex: Male

DRUGS (2)
  1. COMETRIQ [Suspect]
     Active Substance: CABOZANTINIB S-MALATE
     Dosage: 40 MG, QD
     Route: 048
     Dates: start: 201605, end: 20160611
  2. COMETRIQ [Suspect]
     Active Substance: CABOZANTINIB S-MALATE
     Indication: PROSTATE CANCER
     Dosage: 60 MG, QD
     Route: 048
     Dates: start: 20160513, end: 201605

REACTIONS (14)
  - Confusional state [Unknown]
  - Speech disorder [Unknown]
  - Dyspnoea exertional [Unknown]
  - Dysgeusia [Unknown]
  - Dizziness [Unknown]
  - Stomatitis [Unknown]
  - Balance disorder [Unknown]
  - Gait disturbance [Unknown]
  - Dysphonia [Unknown]
  - Asthenia [Unknown]
  - Off label use [Unknown]
  - Chest discomfort [Unknown]
  - Dysphagia [Unknown]
  - Fatigue [Unknown]
